FAERS Safety Report 5212899-X (Version None)
Quarter: 2007Q1

REPORT INFORMATION
  Report Type: 
  Country: None (occurrence: None)
  Receive Date: 20070119
  Receipt Date: 20070109
  Transmission Date: 20070707
  Serious: Yes (Disabling, Other)
  Sender: FDA-Public Use
  Company Number: 2007UW00443

PATIENT
  Age: 35 Year
  Sex: Female
  Weight: 50.5 kg

DRUGS (4)
  1. ZOLADEX [Suspect]
     Indication: ENDOMETRIOSIS
     Route: 058
     Dates: start: 20060809
  2. RIVOTRIL [Concomitant]
     Indication: INSOMNIA
     Route: 048
     Dates: start: 20060901
  3. SERTRALINA [Concomitant]
     Indication: ANXIETY
     Route: 048
     Dates: start: 20060901
  4. SERTRALINA [Concomitant]
     Indication: DEPRESSION
     Route: 048
     Dates: start: 20060901

REACTIONS (23)
  - ANOREXIA [None]
  - ANXIETY [None]
  - ATROPHY [None]
  - CONFUSIONAL STATE [None]
  - CONSTIPATION [None]
  - DEPRESSION [None]
  - DIARRHOEA [None]
  - DIZZINESS [None]
  - DRY EYE [None]
  - DYSPAREUNIA [None]
  - ENDOMETRIAL HYPOPLASIA [None]
  - EYE IRRITATION [None]
  - HEADACHE [None]
  - HOT FLUSH [None]
  - INSOMNIA [None]
  - MALAISE [None]
  - OVARIAN ATROPHY [None]
  - PALPITATIONS [None]
  - SYNCOPE [None]
  - TACHYCARDIA [None]
  - VAGINAL HAEMORRHAGE [None]
  - VOMITING [None]
  - WEIGHT DECREASED [None]
